FAERS Safety Report 6282762-4 (Version None)
Quarter: 2009Q3

REPORT INFORMATION
  Report Type: 
  Country: None (occurrence: None)
  Receive Date: 20090722
  Receipt Date: 20090722
  Transmission Date: 20100115
  Serious: Yes (Other)
  Sender: FDA-Public Use
  Company Number: None

PATIENT
  Sex: Male

DRUGS (5)
  1. OCTREOTIDE [Suspect]
     Indication: GASTROINTESTINAL HAEMORRHAGE
     Dosage: 100 MCG 100 MCG/HR INTRAVENOUS DRIP
     Route: 041
     Dates: start: 20090519, end: 20090522
  2. ESOMEPRAZOLE [Suspect]
  3. ISOSORBIDE MONONITRATE [Concomitant]
  4. NADOLOL [Concomitant]
  5. OXYCODONE [Concomitant]

REACTIONS (2)
  - BRADYCARDIA [None]
  - GASTROINTESTINAL HAEMORRHAGE [None]
